FAERS Safety Report 8985888 (Version 1)
Quarter: 2012Q4

REPORT INFORMATION
  Report Type: 
  Country: NL (occurrence: NL)
  Receive Date: 20121226
  Receipt Date: 20121226
  Transmission Date: 20130627
  Serious: Yes (Other)
  Sender: FDA-Public Use
  Company Number: PHHY2012NL117840

PATIENT
  Age: 29 Year
  Sex: Female

DRUGS (3)
  1. CARBAMAZEPINE [Suspect]
     Indication: EPILEPSY
     Dosage: 200mg in morning and 400mg in evening
     Route: 048
     Dates: start: 1999
  2. MINOCYCLINE HYDROCHLORIDE [Interacting]
     Indication: ACNE
     Dosage: 100 mg, daily
     Route: 048
     Dates: start: 201207
  3. MICROGYNON [Concomitant]
     Dosage: 1 DF, daily

REACTIONS (2)
  - Convulsion [Recovered/Resolved]
  - Drug interaction [Recovered/Resolved]
